FAERS Safety Report 10285378 (Version 2)
Quarter: 2014Q3

REPORT INFORMATION
  Report Type: Report from Study
  Country: MX (occurrence: MX)
  Receive Date: 20140708
  Receipt Date: 20140722
  Transmission Date: 20150326
  Serious: Yes (Hospitalization, Other)
  Sender: FDA-Public Use
  Company Number: PHHY2014MX083821

PATIENT
  Age: 63 Year
  Sex: Female
  Weight: 65 kg

DRUGS (6)
  1. GALVUS MET [Suspect]
     Active Substance: METFORMIN HYDROCHLORIDE\VILDAGLIPTIN
     Indication: TYPE 2 DIABETES MELLITUS
     Dosage: 2 DF (850/50MG) DAILY
     Route: 048
     Dates: start: 2010
  2. GALVUS MET [Suspect]
     Active Substance: METFORMIN HYDROCHLORIDE\VILDAGLIPTIN
     Dosage: 1 DF (850/50MG) DAILY
     Route: 048
     Dates: start: 201406, end: 201406
  3. GALVUS MET [Suspect]
     Active Substance: METFORMIN HYDROCHLORIDE\VILDAGLIPTIN
     Dosage: 1 DF (1000/50 MG), BID MORNING AND NIGHT
     Dates: start: 20140714
  4. DIABION                            /01763801/ [Concomitant]
     Indication: BLOOD GLUCOSE ABNORMAL
     Dosage: 1 UKN, DAILY
     Dates: start: 2009
  5. CO-DIOVAN [Suspect]
     Active Substance: HYDROCHLOROTHIAZIDE\VALSARTAN
     Indication: HYPERTENSION
     Dosage: 1 UKN, DAILY
     Dates: start: 2009
  6. GALVUS MET [Suspect]
     Active Substance: METFORMIN HYDROCHLORIDE\VILDAGLIPTIN
     Dosage: 2 DF (850/50MG) DAILY
     Route: 048
     Dates: start: 201406

REACTIONS (16)
  - Cardiac valve disease [Not Recovered/Not Resolved]
  - Fatigue [Not Recovered/Not Resolved]
  - Blood triglycerides increased [Recovered/Resolved]
  - Blood glucose increased [Recovered/Resolved]
  - Facial spasm [Unknown]
  - Dizziness [Recovered/Resolved]
  - Hypoglycaemia [Recovered/Resolved]
  - Hypoaesthesia [Unknown]
  - Disorientation [Unknown]
  - Blood pressure decreased [Unknown]
  - Blindness [Unknown]
  - Abnormal behaviour [Unknown]
  - Toothache [Recovering/Resolving]
  - Hypersomnia [Not Recovered/Not Resolved]
  - Blood cholesterol increased [Recovered/Resolved]
  - Depressed mood [Not Recovered/Not Resolved]

NARRATIVE: CASE EVENT DATE: 201310
